FAERS Safety Report 13843591 (Version 1)
Quarter: 2017Q3

REPORT INFORMATION
  Report Type: Spontaneous
  Country: US (occurrence: US)
  Receive Date: 20170808
  Receipt Date: 20170808
  Transmission Date: 20171127
  Serious: Yes (Other)
  Sender: FDA-Public Use
  Company Number: None

PATIENT
  Age: 29 Year
  Sex: Male

DRUGS (1)
  1. BUPRENORPHINE. [Suspect]
     Active Substance: BUPRENORPHINE
     Route: 060
     Dates: start: 20170807, end: 20170808

REACTIONS (2)
  - Oral discomfort [None]
  - Mouth ulceration [None]

NARRATIVE: CASE EVENT DATE: 20170808
